FAERS Safety Report 4404104-9 (Version None)
Quarter: 2004Q3

REPORT INFORMATION
  Report Type: 
  Country: None (occurrence: None)
  Receive Date: 20040719
  Receipt Date: 20040628
  Transmission Date: 20050211
  Serious: Yes (Other)
  Sender: FDA-Public Use
  Company Number: B0337860A

PATIENT
  Age: 56 Year
  Sex: Male

DRUGS (2)
  1. EPIVIR [Suspect]
     Indication: HEPATITIS B
     Dosage: ORAL
     Route: 048
  2. TACROLIMUS [Concomitant]

REACTIONS (3)
  - HEPATITIS B [None]
  - LIVER TRANSPLANT [None]
  - SEROLOGY ABNORMAL [None]
